FAERS Safety Report 7880135-1 (Version None)
Quarter: 2011Q4

REPORT INFORMATION
  Report Type: 
  Country: None (occurrence: None)
  Receive Date: 20111101
  Receipt Date: 20111028
  Transmission Date: 20120403
  Serious: Yes (Life-Threatening, Hospitalization, Other)
  Sender: FDA-Public Use
  Company Number: US-ASTRAZENECA-2011SE65294

PATIENT
  Age: 48 Year
  Sex: Male
  Weight: 69.4 kg

DRUGS (3)
  1. ATIVAN [Concomitant]
     Indication: ANXIETY
     Dosage: 1MG, CAN TAKE 3 MG PRN
  2. SEROQUEL [Suspect]
     Indication: PSYCHOTIC DISORDER
     Route: 048
     Dates: start: 19980101
  3. ATIVAN [Concomitant]
     Indication: PANIC ATTACK
     Dosage: 1MG, CAN TAKE 3 MG PRN

REACTIONS (2)
  - SUICIDE ATTEMPT [None]
  - BRAIN INJURY [None]
